FAERS Safety Report 9501447 (Version 2)
Quarter: 2013Q3

REPORT INFORMATION
  Report Type: Spontaneous
  Country: US (occurrence: US)
  Receive Date: 20130905
  Receipt Date: 20130913
  Transmission Date: 20140515
  Serious: Yes (Death, Hospitalization)
  Sender: FDA-Public Use
  Company Number: US-GLAXOSMITHKLINE-A1040306A

PATIENT
  Age: 83 Year
  Sex: Male

DRUGS (1)
  1. PROMACTA [Suspect]
     Indication: NEOPLASM MALIGNANT
     Dosage: 25MG THREE TIMES PER DAY
     Route: 048
     Dates: start: 20120905

REACTIONS (3)
  - Cardiac disorder [Fatal]
  - Cardiac operation [Unknown]
  - Cerebrovascular accident [Unknown]
